FAERS Safety Report 15298098 (Version 1)
Quarter: 2018Q3

REPORT INFORMATION
  Report Type: Spontaneous
  Country: PT (occurrence: PT)
  Receive Date: 20180820
  Receipt Date: 20180820
  Transmission Date: 20181010
  Serious: Yes (Disabling)
  Sender: FDA-Public Use
  Company Number: PT-ALLERGAN-1840579US

PATIENT
  Age: 77 Year
  Sex: Female

DRUGS (3)
  1. VASTAREL [Concomitant]
     Active Substance: TRIMETAZIDINE DIHYDROCHLORIDE
     Indication: PRODUCT USED FOR UNKNOWN INDICATION
     Dosage: UNK
     Route: 048
  2. VICTAN [Concomitant]
     Active Substance: ETHYL LOFLAZEPATE
     Indication: PRODUCT USED FOR UNKNOWN INDICATION
     Dosage: UNK
     Route: 048
  3. ESCITALOPRAM OXALATE ? BP [Suspect]
     Active Substance: ESCITALOPRAM OXALATE
     Indication: PRODUCT USED FOR UNKNOWN INDICATION
     Dosage: 5 GTT, QD
     Route: 048
     Dates: start: 20180520

REACTIONS (9)
  - Dry mouth [Unknown]
  - Muscular weakness [Unknown]
  - Nausea [Unknown]
  - Product dosage form issue [Unknown]
  - Tinnitus [Unknown]
  - Vertigo [Unknown]
  - Decreased appetite [Unknown]
  - Dysgeusia [Unknown]
  - Headache [Unknown]

NARRATIVE: CASE EVENT DATE: 20180621
